FAERS Safety Report 10084649 (Version 11)
Quarter: 2016Q2

REPORT INFORMATION
  Report Type: Report from Study
  Country: US (occurrence: US)
  Receive Date: 20140417
  Receipt Date: 20160427
  Transmission Date: 20160815
  Serious: Yes (Hospitalization, Other)
  Sender: FDA-Public Use
  Company Number: US-SANOFI-AVENTIS-2013SA062305

PATIENT
  Age: 62 Year
  Sex: Female

DRUGS (8)
  1. ESCITALOPRAM OXALATE. [Concomitant]
     Active Substance: ESCITALOPRAM OXALATE
     Dosage: 20 MG
  2. DIAZEPAM. [Concomitant]
     Active Substance: DIAZEPAM
     Dosage: 2 MG
  3. AUBAGIO [Suspect]
     Active Substance: TERIFLUNOMIDE
     Indication: MULTIPLE SCLEROSIS
     Route: 048
     Dates: start: 20130103
  4. ESTRADIOL. [Concomitant]
     Active Substance: ESTRADIOL
     Dosage: 2 MG
  5. LISINOPRIL AND HYDROCHLOROTHIAZIDE [Concomitant]
     Active Substance: HYDROCHLOROTHIAZIDE\LISINOPRIL
     Dosage: 20-25 MG
  6. NORVASC [Concomitant]
     Active Substance: AMLODIPINE BESYLATE
     Dosage: 2.5 MG
  7. BUPROPION. [Concomitant]
     Active Substance: BUPROPION
     Dosage: 300 MG
  8. PREDNISONE. [Concomitant]
     Active Substance: PREDNISONE
     Dosage: 50 MG

REACTIONS (45)
  - Blood triglycerides increased [Unknown]
  - Back pain [Unknown]
  - Nail bed disorder [Unknown]
  - Gait disturbance [Recovered/Resolved]
  - Nodule [Unknown]
  - Sciatica [Recovered/Resolved]
  - Dyskinesia [Recovered/Resolved]
  - Hyperaesthesia [Unknown]
  - Temperature intolerance [Unknown]
  - Anal incontinence [Not Recovered/Not Resolved]
  - Nausea [Not Recovered/Not Resolved]
  - Musculoskeletal pain [Recovering/Resolving]
  - Pain [Recovered/Resolved]
  - Speech disorder [Unknown]
  - Skin discolouration [Unknown]
  - Peroneal nerve palsy [Unknown]
  - Paraesthesia [Unknown]
  - Weight decreased [Not Recovered/Not Resolved]
  - Thrombosis [Unknown]
  - Multiple sclerosis relapse [Recovered/Resolved]
  - Unevaluable event [Unknown]
  - Blood cholesterol increased [Unknown]
  - Weight increased [Unknown]
  - White blood cell disorder [Unknown]
  - Gait disturbance [Recovering/Resolving]
  - Dry skin [Not Recovered/Not Resolved]
  - Stress [Unknown]
  - Hypoaesthesia [Unknown]
  - Multiple sclerosis [Unknown]
  - Back pain [Not Recovered/Not Resolved]
  - Grip strength decreased [Unknown]
  - Cyst [Recovered/Resolved]
  - Asthenia [Not Recovered/Not Resolved]
  - Gastric disorder [Recovering/Resolving]
  - Headache [Recovered/Resolved]
  - Musculoskeletal pain [Recovered/Resolved]
  - Feeling hot [Unknown]
  - Anger [Not Recovered/Not Resolved]
  - Retching [Recovering/Resolving]
  - Hypertension [Not Recovered/Not Resolved]
  - Staphylococcal infection [Not Recovered/Not Resolved]
  - Arthropathy [Unknown]
  - Pain [Unknown]
  - Urinary incontinence [Not Recovered/Not Resolved]
  - Blood glucose increased [Not Recovered/Not Resolved]

NARRATIVE: CASE EVENT DATE: 201302
